FAERS Safety Report 6454414-9 (Version None)
Quarter: 2009Q4

REPORT INFORMATION
  Report Type: 
  Country: None (occurrence: None)
  Receive Date: 20091124
  Receipt Date: 20091112
  Transmission Date: 20100525
  Serious: Yes (Other)
  Sender: FDA-Public Use
  Company Number: PHHY2009JP48514

PATIENT
  Age: 48 Year
  Sex: Male

DRUGS (8)
  1. TEGRETOL [Suspect]
     Indication: TRIGEMINAL NEURALGIA
     Dosage: 200 MG/DAY
     Route: 048
     Dates: start: 20090701
  2. TEGRETOL [Suspect]
     Dosage: 800 MG/DAY
     Route: 048
  3. PAXIL [Concomitant]
     Dosage: 20 MG
     Route: 048
     Dates: start: 20090901
  4. DEPAS [Concomitant]
     Dosage: 1.5 MG
     Route: 048
     Dates: start: 20091001
  5. LOXONIN [Concomitant]
     Dosage: 180 MG
     Route: 048
     Dates: start: 20091001
  6. OLMETEC [Concomitant]
     Dosage: 20 MG
     Route: 048
     Dates: start: 20071201
  7. ADALAT [Concomitant]
     Dosage: 20 MG
     Route: 048
  8. VOLTAREN [Concomitant]
     Dosage: 25 MG
     Route: 048

REACTIONS (3)
  - DIZZINESS [None]
  - TOOTH FRACTURE [None]
  - TRIGEMINAL NEURALGIA [None]
